FAERS Safety Report 5018322-2 (Version None)
Quarter: 2006Q2

REPORT INFORMATION
  Report Type: 
  Country: None (occurrence: None)
  Receive Date: 20060605
  Receipt Date: 20040701
  Transmission Date: 20061013
  Serious: Yes (Other)
  Sender: FDA-Public Use
  Company Number: PHHO2004JP09448

PATIENT
  Age: 67 Year
  Sex: Male
  Weight: 57 kg

DRUGS (11)
  1. GLEEVEC [Suspect]
     Indication: CHRONIC MYELOID LEUKAEMIA
     Dosage: 400 MG, QD
     Route: 048
     Dates: start: 20030110, end: 20050829
  2. LOXONIN [Suspect]
     Indication: SPINAL CORD INJURY THORACIC
     Dosage: 120MG
     Dates: start: 20030503, end: 20040601
  3. LOXONIN [Suspect]
     Dosage: 120MG
     Dates: start: 20040930
  4. BUP-4 [Concomitant]
     Indication: SPINAL CORD INJURY THORACIC
  5. AMARYL [Concomitant]
     Indication: DIABETES MELLITUS
  6. TANATRIL [Concomitant]
     Indication: OEDEMA
     Dates: start: 20030529
  7. SELBEX [Concomitant]
     Indication: GASTRITIS
  8. ALOSENN [Concomitant]
     Indication: SPINAL CORD INJURY THORACIC
     Dates: end: 20040604
  9. LECICARBON [Concomitant]
     Indication: CONSTIPATION
  10. LOXOPROFEN SODIUM [Concomitant]
     Indication: SPINAL CORD INJURY THORACIC
     Dates: end: 20030507
  11. VOLTAREN [Concomitant]
     Indication: SPINAL CORD INJURY THORACIC
     Dates: end: 20030710

REACTIONS (8)
  - ANAEMIA [None]
  - COLON ADENOMA [None]
  - GASTROINTESTINAL HAEMORRHAGE [None]
  - HAEMATOCRIT DECREASED [None]
  - HAEMOGLOBIN DECREASED [None]
  - MELAENA [None]
  - RED BLOOD CELL COUNT DECREASED [None]
  - VISION BLURRED [None]
